FAERS Safety Report 4279551-9 (Version None)
Quarter: 2004Q1

REPORT INFORMATION
  Report Type: 
  Country: None (occurrence: None)
  Receive Date: 20040123
  Receipt Date: 20040114
  Transmission Date: 20041129
  Serious: Yes (Death, Hospitalization, Other)
  Sender: FDA-Public Use
  Company Number: 2004002754

PATIENT
  Sex: 0

DRUGS (2)
  1. VFEND (VORICONAZOLE) [Suspect]
     Indication: ILL-DEFINED DISORDER
     Dosage: ORAL
     Route: 048
  2. CASPOFUNGIN ACETATE (CASPOFUNGIN ACETATE) [Suspect]
     Indication: ILL-DEFINED DISORDER
     Dosage: ORAL
     Route: 048

REACTIONS (2)
  - BONE MARROW TRANSPLANT [None]
  - HEPATIC FAILURE [None]
